FAERS Safety Report 7900934-7 (Version None)
Quarter: 2011Q4

REPORT INFORMATION
  Report Type: 
  Country: None (occurrence: None)
  Receive Date: 20111108
  Receipt Date: 20111026
  Transmission Date: 20120403
  Serious: Yes (Life-Threatening, Hospitalization, Other)
  Sender: FDA-Public Use
  Company Number: US-ELI_LILLY_AND_COMPANY-US201108004993

PATIENT
  Sex: Male

DRUGS (3)
  1. FLUOXETINE HCL [Concomitant]
  2. CYMBALTA [Suspect]
     Indication: MUSCULOSKELETAL PAIN
     Dosage: 30 MG, QD
     Dates: start: 20110701, end: 20110701
  3. NUCYNTA [Concomitant]
     Dosage: UNK
     Dates: start: 20110701

REACTIONS (6)
  - ABDOMINAL PAIN UPPER [None]
  - DEAFNESS BILATERAL [None]
  - DRUG INEFFECTIVE [None]
  - ABNORMAL BEHAVIOUR [None]
  - AMNESIA [None]
  - HALLUCINATIONS, MIXED [None]
